FAERS Safety Report 12946029 (Version 1)
Quarter: 2016Q4

REPORT INFORMATION
  Report Type: Report from Study
  Country: US (occurrence: US)
  Receive Date: 20161115
  Receipt Date: 20161115
  Transmission Date: 20170207
  Serious: Yes (Other)
  Sender: FDA-Public Use
  Company Number: US-GILEAD-2016-0242381

PATIENT
  Age: 65 Year
  Sex: Female

DRUGS (1)
  1. LEDIPASVIR/SOFOSBUVIR [Suspect]
     Active Substance: LEDIPASVIR\SOFOSBUVIR
     Indication: CHRONIC HEPATITIS C
     Dosage: 1 DF, QD
     Route: 048
     Dates: start: 20160201, end: 20160229

REACTIONS (6)
  - Hepatitis C [Recovered/Resolved]
  - Drug ineffective [Recovered/Resolved]
  - Bedridden [Recovered/Resolved]
  - Malaise [Recovered/Resolved]
  - Weight decreased [Unknown]
  - Pneumonia streptococcal [Recovered/Resolved]
